FAERS Safety Report 7305106-5 (Version None)
Quarter: 2011Q1

REPORT INFORMATION
  Report Type: 
  Country: None (occurrence: None)
  Receive Date: 20110222
  Receipt Date: 20110209
  Transmission Date: 20110831
  Serious: Yes (Death)
  Sender: FDA-Public Use
  Company Number: US-CELGENEUS-163-21880-10123211

PATIENT
  Sex: Male

DRUGS (5)
  1. REVLIMID [Suspect]
     Indication: DIFFUSE LARGE B-CELL LYMPHOMA REFRACTORY
     Route: 048
     Dates: start: 20100927, end: 20101214
  2. OXYBUTYNIN [Concomitant]
     Indication: BLADDER SPASM
     Route: 048
     Dates: start: 20101209, end: 20101214
  3. OXYBUTYNIN [Concomitant]
     Indication: NOCTURIA
  4. DURAGESIC-50 [Concomitant]
     Indication: PAIN
     Route: 065
     Dates: start: 20100901, end: 20101201
  5. RITUXAN [Concomitant]
     Route: 051
     Dates: start: 20101203, end: 20101203

REACTIONS (1)
  - DIFFUSE LARGE B-CELL LYMPHOMA REFRACTORY [None]
